FAERS Safety Report 9908403 (Version 1)
Quarter: 2014Q1

REPORT INFORMATION
  Report Type: Spontaneous
  Country: US (occurrence: US)
  Receive Date: 20140219
  Receipt Date: 20140219
  Transmission Date: 20141002
  Serious: No
  Sender: FDA-Public Use
  Company Number: US-TEVA-390299USA

PATIENT
  Sex: Female

DRUGS (1)
  1. DILTIAZEM [Suspect]
     Route: 048

REACTIONS (7)
  - Anxiety [Unknown]
  - Panic reaction [Unknown]
  - Dry eye [Unknown]
  - Nasal dryness [Unknown]
  - Dry mouth [Unknown]
  - Insomnia [Unknown]
  - Amnesia [Unknown]
